FAERS Safety Report 10343192 (Version 1)
Quarter: 2014Q3

REPORT INFORMATION
  Report Type: Spontaneous
  Country: US (occurrence: US)
  Receive Date: 20140725
  Receipt Date: 20140725
  Transmission Date: 20150326
  Serious: Yes (Death, Other)
  Sender: FDA-Public Use
  Company Number: US-PFIZER INC-2014205240

PATIENT
  Sex: Male

DRUGS (2)
  1. AMIODARONE HCL [Suspect]
     Active Substance: AMIODARONE HYDROCHLORIDE
     Indication: ATRIAL FIBRILLATION
     Dosage: 200 MG, UNK
     Route: 048
     Dates: start: 20100512
  2. CORDARONE [Suspect]
     Active Substance: AMIODARONE HYDROCHLORIDE
     Indication: ATRIAL FIBRILLATION
     Dosage: UNK
     Route: 048

REACTIONS (19)
  - Impaired healing [Unknown]
  - Productive cough [Unknown]
  - Lung infiltration [Unknown]
  - Pulmonary toxicity [Fatal]
  - Fatigue [Unknown]
  - Restlessness [Unknown]
  - Respiratory failure [Fatal]
  - Pulmonary oedema [Fatal]
  - Dyspnoea [Fatal]
  - Nervousness [Unknown]
  - Irritability [Unknown]
  - Cachexia [Unknown]
  - Pallor [Unknown]
  - Off label use [Fatal]
  - Disturbance in attention [Unknown]
  - Depression [Unknown]
  - Wheezing [Unknown]
  - Lung disorder [Unknown]
  - Asthenia [Unknown]

NARRATIVE: CASE EVENT DATE: 201005
